FAERS Safety Report 17959049 (Version 2)
Quarter: 2020Q3

REPORT INFORMATION
  Report Type: Report from Study
  Country: CA (occurrence: CA)
  Receive Date: 20200629
  Receipt Date: 20200709
  Transmission Date: 20201103
  Serious: Yes (Other)
  Sender: FDA-Public Use
  Company Number: PHHY2018CA078316

PATIENT
  Sex: Female

DRUGS (1)
  1. KISQALI [Suspect]
     Active Substance: RIBOCICLIB
     Indication: BREAST CANCER METASTATIC
     Dosage: UNK
     Route: 048
     Dates: start: 20180727

REACTIONS (10)
  - Blood creatine increased [Unknown]
  - Oropharyngeal pain [Unknown]
  - White blood cell count decreased [Unknown]
  - Type 2 diabetes mellitus [Recovered/Resolved]
  - Monocyte count decreased [Unknown]
  - Glomerular filtration rate decreased [Unknown]
  - Platelet count decreased [Unknown]
  - Lymphocyte count decreased [Unknown]
  - Oral pain [Unknown]
  - Blood creatine phosphokinase increased [Unknown]
